FAERS Safety Report 19907524 (Version 2)
Quarter: 2021Q4

REPORT INFORMATION
  Report Type: Spontaneous
  Country: MX (occurrence: MX)
  Receive Date: 20211001
  Receipt Date: 20211027
  Transmission Date: 20220303
  Serious: Yes (Death, Hospitalization)
  Sender: FDA-Public Use
  Company Number: MX-BAYER-2021A222036

PATIENT
  Age: 4 Year
  Sex: Male

DRUGS (1)
  1. LAROTRECTINIB [Suspect]
     Active Substance: LAROTRECTINIB
     Indication: Mesoblastic nephroma
     Dosage: 100 MG, BID
     Route: 048
     Dates: start: 20210917

REACTIONS (2)
  - Respiratory disorder [Fatal]
  - Disease complication [Fatal]

NARRATIVE: CASE EVENT DATE: 20210901
